FAERS Safety Report 8384831-1 (Version None)
Quarter: 2012Q2

REPORT INFORMATION
  Report Type: 
  Country: None (occurrence: None)
  Receive Date: 20120524
  Receipt Date: 20120515
  Transmission Date: 20120825
  Serious: No
  Sender: FDA-Public Use
  Company Number: US-ASTRAZENECA-2012SE27929

PATIENT
  Age: 22 Year
  Sex: Male
  Weight: 74.4 kg

DRUGS (8)
  1. CLONAZEPAM [Concomitant]
     Indication: ANXIETY
     Dosage: 1 MG TWO TIMES A DAY AND ANOTHER TWO TABLETS AT NIGHT
  2. LISPIRONE [Concomitant]
     Indication: ANXIETY
  3. HYDROXYZINE PAM [Concomitant]
     Indication: ANXIETY
  4. SEROQUEL XR [Suspect]
     Indication: ANXIETY DISORDER DUE TO A GENERAL MEDICAL CONDITION
     Route: 048
     Dates: start: 20120307
  5. SEROQUEL XR [Suspect]
     Indication: BIPOLAR I DISORDER
     Route: 048
     Dates: start: 20120307
  6. FLUOXETINE [Concomitant]
     Indication: MOOD SWINGS
  7. LITHIUM CARBONATE [Concomitant]
     Indication: BIPOLAR DISORDER
  8. LITHIUM CARBONATE [Concomitant]
     Indication: MOOD SWINGS

REACTIONS (6)
  - FATIGUE [None]
  - INTENTIONAL DRUG MISUSE [None]
  - FORMICATION [None]
  - SOMNOLENCE [None]
  - WITHDRAWAL SYNDROME [None]
  - THERAPEUTIC RESPONSE UNEXPECTED [None]
